FAERS Safety Report 11858087 (Version 1)
Quarter: 2015Q4

REPORT INFORMATION
  Report Type: Spontaneous
  Country: FR (occurrence: FR)
  Receive Date: 20151222
  Receipt Date: 20151222
  Transmission Date: 20160305
  Serious: Yes (Other)
  Sender: FDA-Public Use
  Company Number: FR-JNJFOC-20151214435

PATIENT
  Age: 79 Year
  Sex: Female

DRUGS (3)
  1. CAELYX [Suspect]
     Active Substance: DOXORUBICIN HYDROCHLORIDE
     Indication: OVARIAN CANCER
     Dosage: 2MG/ML
     Route: 042
     Dates: start: 20151118, end: 20151118
  2. SOLU-MEDROL [Concomitant]
     Active Substance: METHYLPREDNISOLONE SODIUM SUCCINATE
     Indication: OVARIAN CANCER
     Route: 042
     Dates: start: 20151118, end: 20151118
  3. ZOPHREN [Concomitant]
     Active Substance: ONDANSETRON
     Dosage: 8MG/4ML
     Route: 042
     Dates: start: 20151118, end: 20151118

REACTIONS (3)
  - Back pain [Recovered/Resolved]
  - Infusion related reaction [Recovered/Resolved]
  - Hypertension [Recovered/Resolved]

NARRATIVE: CASE EVENT DATE: 20151118
